FAERS Safety Report 25204651 (Version 1)
Quarter: 2025Q2

REPORT INFORMATION
  Report Type: Spontaneous
  Country: US (occurrence: US)
  Receive Date: 20250416
  Receipt Date: 20250416
  Transmission Date: 20250717
  Serious: Yes (Hospitalization)
  Sender: BAYER
  Company Number: US-BAYER-2025A050233

PATIENT
  Age: 55 Year
  Sex: Female

DRUGS (1)
  1. ADEMPAS [Suspect]
     Active Substance: RIOCIGUAT
     Indication: Pulmonary arterial hypertension
     Dosage: 1.5 MG, TID
     Route: 048
     Dates: start: 20221125

REACTIONS (3)
  - Electrocardiogram ST segment elevation [None]
  - Coronary artery occlusion [None]
  - Chest pain [None]

NARRATIVE: CASE EVENT DATE: 20250314
